FAERS Safety Report 21944299 (Version 2)
Quarter: 2023Q1

REPORT INFORMATION
  Report Type: Spontaneous
  Country: DE (occurrence: DE)
  Receive Date: 20230202
  Receipt Date: 20230207
  Transmission Date: 20230417
  Serious: Yes (Other)
  Sender: FDA-Public Use
  Company Number: DE-EMBRYOTOX-202118043

PATIENT
  Age: 1 Day
  Sex: Female
  Weight: 2.36 kg

DRUGS (5)
  1. CIMZIA [Suspect]
     Active Substance: CERTOLIZUMAB PEGOL
     Indication: Psoriasis
     Dosage: 200 [MG/D (ALLE 2 WK) ]/ BREAK 2 WEEKS BEFORE AND AFTER 3. BIONTECH-VACCINATION (GW 16.2)
  2. CITALOPRAM [Suspect]
     Active Substance: CITALOPRAM HYDROBROMIDE
     Indication: Obsessive-compulsive disorder
     Dosage: 40 [MG/D (BIS 20 MG/D) ]/ 40 MG/D, 2 WEEKS BEFORE DELIVERY REDUCTION TO 20 MG/D
     Dates: start: 20210823, end: 20220518
  3. COMIRNATY [Concomitant]
     Active Substance: TOZINAMERAN
     Indication: COVID-19 immunisation
     Dosage: UNK
  4. METHYLDOPA [Concomitant]
     Active Substance: METHYLDOPA
     Indication: Pre-eclampsia
  5. LEVOTHYROXINE SODIUM [Concomitant]
     Active Substance: LEVOTHYROXINE SODIUM
     Indication: Hypothyroidism
     Dosage: 75 [?G/D ]
     Dates: start: 20210823, end: 20220518

REACTIONS (5)
  - Small for dates baby [Recovered/Resolved]
  - Respiratory disorder neonatal [Recovered/Resolved]
  - Neonatal hypoxia [Recovered/Resolved]
  - Low birth weight baby [Unknown]
  - Maternal exposure during pregnancy [Unknown]

NARRATIVE: CASE EVENT DATE: 20220501
